FAERS Safety Report 16414485 (Version 1)
Quarter: 2020Q3

REPORT INFORMATION
  Report Type: Spontaneous
  Country: US (occurrence: US)
  Receive Date: 20190611
  Receipt Date: 20190611
  Transmission Date: 20201104
  Serious: Yes (Other)
  Sender: FDA-Public Use
  Company Number: PHHY2019US129809

PATIENT
  Age: 34 Year
  Sex: Female

DRUGS (5)
  1. LIDOCAINE. [Suspect]
     Active Substance: LIDOCAINE
     Indication: EPIDURAL ANALGESIA
     Dosage: 1.5 %, UNK
     Route: 008
  2. EPHEDRINE. [Suspect]
     Active Substance: EPHEDRINE
     Indication: PRODUCT USED FOR UNKNOWN INDICATION
     Dosage: 10 MG, UNK
     Route: 065
  3. BUPIVACAINE. [Suspect]
     Active Substance: BUPIVACAINE
     Indication: EPIDURAL ANALGESIA
     Dosage: 15 ML OF 0.0625%
     Route: 065
  4. FENTANYL. [Suspect]
     Active Substance: FENTANYL
     Dosage: 10 ML, QH (WITH A DEMAND BOLUS OF 5 ML AND A 10?MIN LOCK?OUT)
     Route: 008
  5. FENTANYL. [Suspect]
     Active Substance: FENTANYL
     Indication: EPIDURAL ANALGESIA
     Dosage: 2 NG/ML, UNK
     Route: 008

REACTIONS (4)
  - Syncope [Unknown]
  - Loss of consciousness [Unknown]
  - Tinnitus [Unknown]
  - Foetal death [Unknown]
